FAERS Safety Report 5330397-X (Version None)
Quarter: 2007Q2

REPORT INFORMATION
  Report Type: 
  Country: None (occurrence: None)
  Receive Date: 20070521
  Receipt Date: 20070515
  Transmission Date: 20071010
  Serious: Yes (Hospitalization)
  Sender: FDA-Public Use
  Company Number: PL-ROXANE LABORATORIES, INC-2007-BP-06587RO

PATIENT
  Age: 29 Year
  Sex: Female

DRUGS (5)
  1. ZOLPIDEM [Suspect]
     Indication: INSOMNIA
     Dosage: 160 MG/DAY
     Route: 048
     Dates: start: 20020101
  2. ZOLPIDEM [Suspect]
     Route: 048
  3. DIVALPROEX SODIUM [Suspect]
     Indication: DRUG DEPENDENCE
     Dosage: 1000 MG DAILY
     Route: 048
  4. DIVALPROEX SODIUM [Suspect]
     Route: 048
  5. CLOMETHIAZOLE [Concomitant]

REACTIONS (3)
  - DRUG WITHDRAWAL CONVULSIONS [None]
  - GRAND MAL CONVULSION [None]
  - HEPATIC ENZYME INCREASED [None]
